FAERS Safety Report 8558154-1 (Version None)
Quarter: 2012Q3

REPORT INFORMATION
  Report Type: 
  Country: None (occurrence: None)
  Receive Date: 20120801
  Receipt Date: 20120713
  Transmission Date: 20120928
  Serious: Yes (Other)
  Sender: FDA-Public Use
  Company Number: CA-009507513-2012SP033268

PATIENT

DRUGS (2)
  1. SAPHRIS [Suspect]
     Indication: BIPOLAR DISORDER
     Dosage: 10 MG, QD
     Route: 060
     Dates: start: 20120401, end: 20120606
  2. LAMICTAL [Concomitant]
     Dosage: 225 MG, QD

REACTIONS (9)
  - AMNESIA [None]
  - DYSARTHRIA [None]
  - ATAXIA [None]
  - DISORIENTATION [None]
  - DELIRIUM [None]
  - CONFUSIONAL STATE [None]
  - INAPPROPRIATE SCHEDULE OF DRUG ADMINISTRATION [None]
  - HEADACHE [None]
  - DIZZINESS [None]
